FAERS Safety Report 8172457-4 (Version None)
Quarter: 2012Q1

REPORT INFORMATION
  Report Type: 
  Country: None (occurrence: None)
  Receive Date: 20120227
  Receipt Date: 20120227
  Transmission Date: 20120608
  Serious: Yes (Hospitalization)
  Sender: FDA-Public Use
  Company Number: None

PATIENT
  Sex: Male
  Weight: 18.6 kg

DRUGS (5)
  1. METHOTREXATE [Suspect]
     Dosage: 12 MG
  2. CYTARABINE [Suspect]
     Dosage: 70 MG
  3. VINCRISTINE SULFATE [Suspect]
     Dosage: 4 MG
  4. PEG-L ASPARAGINASE (PEGASPARGASE, ONCOSPAR) [Suspect]
     Dosage: 3325 IU
  5. DEXAMETHASONE [Suspect]
     Dosage: 112 MG

REACTIONS (1)
  - NEPHROLITHIASIS [None]
